FAERS Safety Report 7682874-4 (Version None)
Quarter: 2011Q3

REPORT INFORMATION
  Report Type: 
  Country: None (occurrence: None)
  Receive Date: 20110815
  Receipt Date: 20110801
  Transmission Date: 20111222
  Serious: Yes (Other)
  Sender: FDA-Public Use
  Company Number: NL-ROCHE-793937

PATIENT

DRUGS (1)
  1. MYCOPHENOLATE MOFETIL [Suspect]
     Indication: AUTOIMMUNE HEPATITIS
     Route: 065

REACTIONS (4)
  - INFECTION [None]
  - SKIN CANCER [None]
  - COLITIS ISCHAEMIC [None]
  - TREATMENT FAILURE [None]
